FAERS Safety Report 16405984 (Version 6)
Quarter: 2021Q2

REPORT INFORMATION
  Report Type: Report from Study
  Country: US (occurrence: US)
  Receive Date: 20190607
  Receipt Date: 20210622
  Transmission Date: 20210716
  Serious: Yes (Hospitalization)
  Sender: FDA-Public Use
  Company Number: PHEH2019US024056

PATIENT
  Age: 38 Year
  Sex: Female
  Weight: 96.16 kg

DRUGS (4)
  1. TREPROSTINIL. [Suspect]
     Active Substance: TREPROSTINIL
     Indication: PULMONARY ARTERIAL HYPERTENSION
     Dosage: 96 NG/KG/MIN
     Route: 042
     Dates: start: 20190424
  2. TREPROSTINIL. [Suspect]
     Active Substance: TREPROSTINIL
     Dosage: 100 NG/KG/MIN
     Route: 042
     Dates: start: 20190424
  3. OPSUMIT [Concomitant]
     Active Substance: MACITENTAN
     Indication: PRODUCT USED FOR UNKNOWN INDICATION
     Route: 065
  4. XARELTO [Concomitant]
     Active Substance: RIVAROXABAN
     Indication: PRODUCT USED FOR UNKNOWN INDICATION
     Route: 065

REACTIONS (6)
  - Vascular device infection [Unknown]
  - Infusion site rash [Unknown]
  - Infusion site irritation [Unknown]
  - Infusion site pruritus [Unknown]
  - Catheter site infection [Unknown]
  - Expired product administered [Unknown]

NARRATIVE: CASE EVENT DATE: 202005
